FAERS Safety Report 7502676-9 (Version None)
Quarter: 2011Q2

REPORT INFORMATION
  Report Type: 
  Country: None (occurrence: None)
  Receive Date: 20110517
  Receipt Date: 20110503
  Transmission Date: 20111010
  Serious: Yes (Hospitalization)
  Sender: FDA-Public Use
  Company Number: 2010SP004576

PATIENT
  Age: 18 Year
  Sex: Female
  Weight: 99.7913 kg

DRUGS (1)
  1. NUVARING [Suspect]
     Indication: CONTRACEPTION
     Dates: start: 20081101, end: 20090205

REACTIONS (33)
  - THROMBOSIS [None]
  - INTRA-UTERINE DEATH [None]
  - DILATATION VENTRICULAR [None]
  - DRUG EXPOSURE BEFORE PREGNANCY [None]
  - URINARY BLADDER RUPTURE [None]
  - URINARY TRACT INFECTION [None]
  - TREATMENT NONCOMPLIANCE [None]
  - ASTHMA [None]
  - PULMONARY HYPERTENSION [None]
  - PULMONARY EMBOLISM [None]
  - LOSS OF CONSCIOUSNESS [None]
  - HAEMATURIA [None]
  - OEDEMA PERIPHERAL [None]
  - DIZZINESS [None]
  - CARDIAC DISORDER [None]
  - RESPIRATORY DISORDER [None]
  - INTERNATIONAL NORMALISED RATIO DECREASED [None]
  - VIRAL INFECTION [None]
  - DYSPNOEA [None]
  - ROAD TRAFFIC ACCIDENT [None]
  - VENTRICULAR HYPOKINESIA [None]
  - PRESYNCOPE [None]
  - PROTEIN C DEFICIENCY [None]
  - PNEUMONIA [None]
  - DEEP VEIN THROMBOSIS [None]
  - PREGNANCY [None]
  - SINUSITIS [None]
  - VAGINITIS BACTERIAL [None]
  - ABORTION MISSED [None]
  - PROTEIN S DEFICIENCY [None]
  - LYMPHOEDEMA [None]
  - WHITE BLOOD CELL COUNT INCREASED [None]
  - ATRIOVENTRICULAR BLOCK FIRST DEGREE [None]
